FAERS Safety Report 7488407-X (Version None)
Quarter: 2011Q2

REPORT INFORMATION
  Report Type: 
  Country: None (occurrence: None)
  Receive Date: 20110518
  Receipt Date: 20110512
  Transmission Date: 20111010
  Serious: Yes (Hospitalization)
  Sender: FDA-Public Use
  Company Number: CA-ABBOTT-11P-028-0725477-00

PATIENT
  Age: 2 Year
  Sex: Male

DRUGS (1)
  1. LEVOTHYROXINE SODIUM [Suspect]
     Indication: PRODUCT USED FOR UNKNOWN INDICATION
     Dosage: UP TO 7.6 MG

REACTIONS (10)
  - BODY TEMPERATURE INCREASED [None]
  - HEART RATE INCREASED [None]
  - IRRITABILITY [None]
  - OVERDOSE [None]
  - SKIN EXFOLIATION [None]
  - THYROXINE FREE ABNORMAL [None]
  - RESPIRATORY RATE INCREASED [None]
  - HYPERTENSION [None]
  - ALOPECIA [None]
  - TRI-IODOTHYRONINE FREE ABNORMAL [None]
